FAERS Safety Report 18698184 (Version 1)
Quarter: 2021Q1

REPORT INFORMATION
  Report Type: Spontaneous
  Country: US (occurrence: US)
  Receive Date: 20210105
  Receipt Date: 20210105
  Transmission Date: 20210419
  Serious: Yes (Death)
  Sender: FDA-Public Use
  Company Number: US-ALVOGEN-2021-ALVOGEN-115709

PATIENT
  Age: 72 Year
  Sex: Female

DRUGS (4)
  1. FLUOXETINE [Suspect]
     Active Substance: FLUOXETINE HYDROCHLORIDE
     Indication: SUICIDE ATTEMPT
     Dosage: ROUTE OF ADMINISTRATION: INGST + UNKNOWN
  2. BUPROPION. [Suspect]
     Active Substance: BUPROPION
     Indication: SUICIDE ATTEMPT
     Dosage: ROUTE OF ADMINISTRATION: INGST + UNKNOWN
     Route: 048
  3. MARIJUANA [Suspect]
     Active Substance: CANNABIS SATIVA SUBSP. INDICA TOP
     Indication: SUICIDE ATTEMPT
     Dosage: ROUTE OF ADMINISTRATION: INGST + UNKNWON
  4. ALCOHOL. [Suspect]
     Active Substance: ALCOHOL
     Indication: SUICIDE ATTEMPT
     Dosage: ROUTE OF ADMINISTRATION: INGST + UNKNOWN

REACTIONS (1)
  - Completed suicide [Fatal]
